FAERS Safety Report 9904948 (Version 3)
Quarter: 2015Q3

REPORT INFORMATION
  Report Type: Spontaneous
  Country: US (occurrence: US)
  Receive Date: 20140218
  Receipt Date: 20150811
  Transmission Date: 20151125
  Serious: No
  Sender: FDA-Public Use
  Company Number: US-GILEAD-2012-0049313

PATIENT
  Age: 36 Year
  Sex: Female

DRUGS (2)
  1. LETAIRIS [Suspect]
     Active Substance: AMBRISENTAN
     Indication: PRODUCT USED FOR UNKNOWN INDICATION
     Dosage: 10 MG, UNK
     Route: 048
     Dates: start: 20101028
  2. REMODULIN [Concomitant]
     Active Substance: TREPROSTINIL
     Dosage: 10 MG, UNK
     Route: 048
     Dates: start: 20101028

REACTIONS (3)
  - Pain [Unknown]
  - Chills [Unknown]
  - Unevaluable event [Unknown]
